FAERS Safety Report 9259558 (Version 1)
Quarter: 2013Q2

REPORT INFORMATION
  Report Type: Report from Study
  Country: CA (occurrence: CA)
  Receive Date: 20130429
  Receipt Date: 20130429
  Transmission Date: 20140414
  Serious: Yes (Hospitalization)
  Sender: FDA-Public Use
  Company Number: CA-ROCHE-1218563

PATIENT
  Sex: Female

DRUGS (3)
  1. PEGASYS [Suspect]
     Indication: HEPATITIS C
     Route: 058
     Dates: start: 20130307
  2. COPEGUS [Suspect]
     Indication: HEPATITIS C
     Route: 065
     Dates: start: 20130307
  3. INCIVEK [Suspect]
     Indication: HEPATITIS C
     Route: 065
     Dates: start: 20130307

REACTIONS (2)
  - Blood urine present [Unknown]
  - Toxic shock syndrome [Unknown]
